FAERS Safety Report 14493567 (Version 2)
Quarter: 2018Q2

REPORT INFORMATION
  Report Type: Spontaneous
  Country: IT (occurrence: IT)
  Receive Date: 20180206
  Receipt Date: 20180510
  Transmission Date: 20180711
  Serious: Yes (Hospitalization, Other)
  Sender: FDA-Public Use
  Company Number: IT-ELI_LILLY_AND_COMPANY-IT201801013944

PATIENT
  Age: 68 Year
  Sex: Male
  Weight: 70 kg

DRUGS (5)
  1. ZARZIO [Suspect]
     Active Substance: FILGRASTIM
     Indication: NEUTROPENIA
     Dosage: 30 DF, CYCLICAL
     Route: 051
     Dates: start: 20170921
  2. ALIMTA [Suspect]
     Active Substance: PEMETREXED DISODIUM
     Indication: MESOTHELIOMA MALIGNANT
     Dosage: 675 MG, UNKNOWN
     Route: 042
     Dates: start: 20170911, end: 20170917
  3. ALIMTA [Suspect]
     Active Substance: PEMETREXED DISODIUM
     Dosage: UNK UNK, UNKNOWN
     Route: 042
     Dates: start: 20171030
  4. CISPLATIN. [Suspect]
     Active Substance: CISPLATIN
     Indication: MESOTHELIOMA MALIGNANT
     Dosage: 100 MG, UNKNOWN
     Route: 042
     Dates: start: 20170911, end: 20170917
  5. CISPLATIN. [Suspect]
     Active Substance: CISPLATIN
     Dosage: UNK UNK, UNKNOWN
     Route: 042
     Dates: start: 20171030

REACTIONS (5)
  - Hyperpyrexia [Unknown]
  - Neutropenia [Unknown]
  - Chills [Unknown]
  - Nausea [Unknown]
  - Decreased appetite [Unknown]
